FAERS Safety Report 23346633 (Version 1)
Quarter: 2023Q4

REPORT INFORMATION
  Report Type: Spontaneous
  Country: CN (occurrence: CN)
  Receive Date: 20231228
  Receipt Date: 20231228
  Transmission Date: 20240110
  Serious: Yes (Hospitalization, Other)
  Sender: FDA-Public Use
  Company Number: None

PATIENT
  Age: 72 Year
  Sex: Male
  Weight: 65 kg

DRUGS (4)
  1. IFOSFAMIDE [Suspect]
     Active Substance: IFOSFAMIDE
     Indication: Waldenstrom^s macroglobulinaemia
     Dosage: 0.2 G, ONE TIME IN ONE DAY
     Route: 041
     Dates: start: 20231027, end: 20231101
  2. CYCLOPHOSPHAMIDE [Suspect]
     Active Substance: CYCLOPHOSPHAMIDE
     Indication: Waldenstrom^s macroglobulinaemia
     Dosage: 0.2 G, QD, DILUTED WITH 250ML OF SODIUM CHLORIDE
     Route: 042
     Dates: start: 20231027, end: 20231101
  3. SODIUM CHLORIDE [Suspect]
     Active Substance: SODIUM CHLORIDE
     Indication: Medication dilution
     Dosage: (0.9%), 250 ML, QD, USED TO DILUTE 0.2 G OF CYCLOPHOSPHAMIDE
     Route: 042
     Dates: start: 20231027, end: 20231101
  4. RITUXIMAB [Suspect]
     Active Substance: RITUXIMAB
     Indication: Waldenstrom^s macroglobulinaemia
     Dosage: 600 MG, ONE TIME IN ONE DAY
     Route: 041
     Dates: start: 20231027, end: 20231027

REACTIONS (1)
  - Myelosuppression [Unknown]

NARRATIVE: CASE EVENT DATE: 20231101
